FAERS Safety Report 4852790-1 (Version None)
Quarter: 2005Q4

REPORT INFORMATION
  Report Type: 
  Country: None (occurrence: None)
  Receive Date: 20051214
  Receipt Date: 20051121
  Transmission Date: 20060501
  Serious: Yes (Disabling, Other)
  Sender: FDA-Public Use
  Company Number: PHFR2005GB03823

PATIENT
  Age: 55 Year
  Sex: Female

DRUGS (2)
  1. TEGRETOL [Suspect]
     Indication: TRIGEMINAL NEURALGIA
     Dosage: 400MG DAILY
     Route: 048
     Dates: start: 20030101
  2. LANSOPRAZOLE [Concomitant]
     Indication: OESOPHAGITIS
     Dosage: 30MG DAILY
     Route: 048

REACTIONS (3)
  - DYSPHAGIA [None]
  - OESOPHAGEAL DILATION PROCEDURE [None]
  - OESOPHAGEAL STENOSIS [None]
